FAERS Safety Report 9397815 (Version 3)
Quarter: 2013Q3

REPORT INFORMATION
  Report Type: Report from Study
  Country: US (occurrence: US)
  Receive Date: 20130712
  Receipt Date: 20130805
  Transmission Date: 20140515
  Serious: Yes (Hospitalization)
  Sender: FDA-Public Use
  Company Number: US-ACTELION-A-NJ2013-83038

PATIENT
  Age: 50 Year
  Sex: Male

DRUGS (3)
  1. TRACLEER [Suspect]
     Indication: PULMONARY HYPERTENSION
     Dosage: 125 MG, BID
     Route: 048
     Dates: start: 201112
  2. TYVASO [Concomitant]
  3. SILDENAFIL [Concomitant]
     Dosage: 20 MG, UNK

REACTIONS (6)
  - Intervertebral discitis [Recovering/Resolving]
  - Back pain [Recovering/Resolving]
  - Osteomyelitis [Recovering/Resolving]
  - Psoas abscess [Recovering/Resolving]
  - Staphylococcus test positive [Recovering/Resolving]
  - Drug dose omission [Unknown]
